FAERS Safety Report 7278224-8 (Version None)
Quarter: 2011Q1

REPORT INFORMATION
  Report Type: 
  Country: None (occurrence: None)
  Receive Date: 20110207
  Receipt Date: 20110131
  Transmission Date: 20110831
  Serious: Yes (Hospitalization, Other)
  Sender: FDA-Public Use
  Company Number: US-TEVA-265302USA

PATIENT
  Age: 33 Year
  Sex: Female

DRUGS (1)
  1. DIPHENHYDRAMINE HYDROCHLORIDE [Suspect]

REACTIONS (3)
  - TACHYCARDIA [None]
  - INTENTIONAL OVERDOSE [None]
  - STATUS EPILEPTICUS [None]
